FAERS Safety Report 7083054-6 (Version None)
Quarter: 2010Q4

REPORT INFORMATION
  Report Type: 
  Country: None (occurrence: None)
  Receive Date: 20101026
  Receipt Date: 20101011
  Transmission Date: 20110411
  Serious: Yes (Other)
  Sender: FDA-Public Use
  Company Number: 10-094

PATIENT
  Age: 46 Year
  Sex: Male

DRUGS (6)
  1. DIVALPROEX SODIUM [Suspect]
     Indication: SCHIZOAFFECTIVE DISORDER BIPOLAR TYPE
     Dosage: 1500 MG;QD;PO ; 2000 MG;HS;PO
     Route: 048
  2. VALPROIC ACID [Suspect]
     Indication: SCHIZOAFFECTIVE DISORDER BIPOLAR TYPE
     Dosage: 1500 MG;Q8H;PO ; 1500 MG;Q6H;PO ; 1500 MG;Q8H;PO
     Route: 048
  3. OLANZAPINE [Concomitant]
  4. AMPICILLIN AND SULBACTAM [Concomitant]
  5. VANCOMYCIN [Concomitant]
  6. PREV MEDS [Concomitant]

REACTIONS (4)
  - CELLULITIS [None]
  - DRUG INTERACTION [None]
  - DRUG LEVEL BELOW THERAPEUTIC [None]
  - SEDATION [None]
